FAERS Safety Report 8393262-X (Version None)
Quarter: 2012Q2

REPORT INFORMATION
  Report Type: 
  Country: None (occurrence: None)
  Receive Date: 20120529
  Receipt Date: 20120523
  Transmission Date: 20120825
  Serious: Yes (Life-Threatening, Hospitalization, Other)
  Sender: FDA-Public Use
  Company Number: GB-PFIZER INC-2012087279

PATIENT
  Age: 50 Year
  Sex: Female
  Weight: 137 kg

DRUGS (2)
  1. AMLODIPINE BESYLATE [Suspect]
     Dosage: 770 MG, SINGLE
  2. LOSARTAN POTASSIUM [Suspect]
     Dosage: 16640 MG, UNK

REACTIONS (2)
  - HYPOTENSION [None]
  - OVERDOSE [None]
